FAERS Safety Report 4602334-4 (Version None)
Quarter: 2005Q2

REPORT INFORMATION
  Report Type: 
  Country: None (occurrence: None)
  Receive Date: 20050223
  Receipt Date: 20041114
  Transmission Date: 20051028
  Serious: No
  Sender: FDA-Public Use
  Company Number: 209663

PATIENT
  Age: 26 Year
  Sex: Female

DRUGS (1)
  1. RAPTIVA [Suspect]
     Indication: PSORIASIS
     Dosage: 1 MG, 1/WEEK, SUBCUTANEOUS
     Route: 058
     Dates: start: 20040301, end: 20041005

REACTIONS (1)
  - MYALGIA [None]
